FAERS Safety Report 8119916-8 (Version None)
Quarter: 2012Q1

REPORT INFORMATION
  Report Type: 
  Country: None (occurrence: None)
  Receive Date: 20120206
  Receipt Date: 20120206
  Transmission Date: 20120608
  Serious: Yes (Hospitalization)
  Sender: FDA-Public Use
  Company Number: None

PATIENT
  Age: 88 Year
  Sex: Female
  Weight: 46.5 kg

DRUGS (7)
  1. FLUEXETINE [Concomitant]
  2. LEVOTHYROXINE SODIUM [Concomitant]
  3. SIMVASTATIN [Concomitant]
  4. ASPIRIN [Concomitant]
  5. POTASSIUM CHLORIDE [Concomitant]
  6. OMEPRAZOLE [Concomitant]
  7. LEVOFLOXACIN [Suspect]
     Indication: PNEUMONIA
     Dosage: 750 MG IV X 1 SINGLE DOSE ON 11-3-11
     Route: 042
     Dates: start: 20111103

REACTIONS (1)
  - PLATELET COUNT DECREASED [None]
